FAERS Safety Report 7123599-3 (Version None)
Quarter: 2010Q4

REPORT INFORMATION
  Report Type: 
  Country: None (occurrence: None)
  Receive Date: 20101125
  Receipt Date: 20101119
  Transmission Date: 20110411
  Serious: Yes (Hospitalization, Other)
  Sender: FDA-Public Use
  Company Number: US-BRISTOL-MYERS SQUIBB COMPANY-15291644

PATIENT
  Age: 61 Year
  Sex: Female
  Weight: 41 kg

DRUGS (7)
  1. ERBITUX [Suspect]
     Indication: LARYNGEAL CANCER STAGE III
     Dosage: CY1 400MG/M2(16AG10):CY2(24AG10)6(06OCT10)250MG/M2:CY3(31AG10):CY4(08SP10):CY5 HELD:RESUMED 29SP10
     Route: 042
     Dates: start: 20100816
  2. RADIATION THERAPY [Suspect]
     Indication: LARYNGEAL CANCER STAGE III
     Dosage: RESUMED 22SEP2010 COMPLETED 1DF=70 GY AS OF 12OCT2010
  3. DOXYCYCLINE [Concomitant]
     Route: 048
  4. ASA [Concomitant]
     Route: 048
  5. OMEPRAZOLE [Concomitant]
     Route: 048
  6. TYLENOL (CAPLET) [Concomitant]
     Dosage: Q 4-6 HRS
     Route: 048
  7. REGLAN [Concomitant]
     Dosage: AS NECESSARY
     Route: 048

REACTIONS (12)
  - ABDOMINAL PAIN [None]
  - BLOOD POTASSIUM DECREASED [None]
  - BLOOD SODIUM DECREASED [None]
  - CONSTIPATION [None]
  - HEADACHE [None]
  - NAUSEA [None]
  - PNEUMATOSIS [None]
  - PNEUMOPERITONEUM [None]
  - POSTOPERATIVE ILEUS [None]
  - RADIATION SKIN INJURY [None]
  - RASH [None]
  - VOMITING [None]
